FAERS Safety Report 18748051 (Version 2)
Quarter: 2021Q1

REPORT INFORMATION
  Report Type: Spontaneous
  Country: CN (occurrence: CN)
  Receive Date: 20210115
  Receipt Date: 20210122
  Transmission Date: 20210419
  Serious: Yes (Death, Other)
  Sender: FDA-Public Use
  Company Number: CN-ASTRAZENECA-2021A000776

PATIENT
  Age: 63 Year
  Sex: Female

DRUGS (2)
  1. IRESSA [Suspect]
     Active Substance: GEFITINIB
     Indication: NON-SMALL CELL LUNG CANCER
     Route: 048
     Dates: start: 202012, end: 20201219
  2. TAGRISSO [Suspect]
     Active Substance: OSIMERTINIB
     Indication: NON-SMALL CELL LUNG CANCER
     Route: 048
     Dates: start: 20201220, end: 20201227

REACTIONS (7)
  - Dysphagia [Recovering/Resolving]
  - Skin exfoliation [Unknown]
  - Stomatitis [Unknown]
  - Rash [Unknown]
  - Dermatitis [Fatal]
  - Keratitis [Unknown]
  - Skin infection [Fatal]
